FAERS Safety Report 5899710-9 (Version None)
Quarter: 2008Q3

REPORT INFORMATION
  Report Type: 
  Country: None (occurrence: None)
  Receive Date: 20080919
  Receipt Date: 20080909
  Transmission Date: 20090109
  Serious: Yes (Other)
  Sender: FDA-Public Use
  Company Number: 200813918

PATIENT
  Age: 59 Year
  Sex: Female
  Weight: 92.9874 kg

DRUGS (25)
  1. VIVAGLOBIN [Suspect]
     Indication: IMMUNODEFICIENCY COMMON VARIABLE
     Dosage: 86 ML Q1W SC
     Route: 058
     Dates: start: 20080407, end: 20080529
  2. VIVAGLOBIN [Suspect]
     Indication: IMMUNODEFICIENCY COMMON VARIABLE
     Dosage: 86 ML Q1W SC
     Route: 058
     Dates: start: 20080407, end: 20080529
  3. VIVAGLOBIN [Suspect]
     Indication: IMMUNODEFICIENCY COMMON VARIABLE
     Dosage: 86 ML Q1W SC
     Route: 058
     Dates: start: 20080601, end: 20080615
  4. VIVAGLOBIN [Suspect]
     Indication: IMMUNODEFICIENCY COMMON VARIABLE
     Dosage: 86 ML Q1W SC
     Route: 058
     Dates: start: 20080601, end: 20080615
  5. VIVAGLOBIN [Suspect]
     Indication: IMMUNODEFICIENCY COMMON VARIABLE
     Dosage: 86 ML Q1W SC
     Route: 058
     Dates: start: 20080616, end: 20080616
  6. VIVAGLOBIN [Suspect]
     Indication: IMMUNODEFICIENCY COMMON VARIABLE
     Dosage: 86 ML Q1W SC
     Route: 058
     Dates: start: 20080616, end: 20080616
  7. VIVAGLOBIN [Suspect]
     Indication: IMMUNODEFICIENCY COMMON VARIABLE
     Dosage: 86 ML Q1W SC
     Route: 058
     Dates: start: 20080622, end: 20080629
  8. VIVAGLOBIN [Suspect]
     Indication: IMMUNODEFICIENCY COMMON VARIABLE
     Dosage: 86 ML Q1W SC
     Route: 058
     Dates: start: 20080622, end: 20080629
  9. VIVAGLOBIN [Suspect]
     Indication: IMMUNODEFICIENCY COMMON VARIABLE
     Dosage: 86 ML Q1W SC
     Route: 058
     Dates: start: 20080703, end: 20080703
  10. VIVAGLOBIN [Suspect]
     Indication: IMMUNODEFICIENCY COMMON VARIABLE
     Dosage: 86 ML Q1W SC
     Route: 058
     Dates: start: 20080703, end: 20080703
  11. VIVAGLOBIN [Suspect]
     Indication: IMMUNODEFICIENCY COMMON VARIABLE
     Dosage: 86 ML Q1W SC
     Route: 058
     Dates: start: 20080706, end: 20080710
  12. VIVAGLOBIN [Suspect]
     Indication: IMMUNODEFICIENCY COMMON VARIABLE
     Dosage: 86 ML Q1W SC
     Route: 058
     Dates: start: 20080706, end: 20080710
  13. VIVAGLOBIN [Suspect]
     Indication: IMMUNODEFICIENCY COMMON VARIABLE
     Dosage: 86 ML Q1W SC
     Route: 058
     Dates: start: 20080713, end: 20080717
  14. VIVAGLOBIN [Suspect]
     Indication: IMMUNODEFICIENCY COMMON VARIABLE
     Dosage: 86 ML Q1W SC
     Route: 058
     Dates: start: 20080713, end: 20080717
  15. VIVAGLOBIN [Suspect]
     Indication: IMMUNODEFICIENCY COMMON VARIABLE
     Dosage: 86 ML Q1W SC
     Route: 058
     Dates: start: 20080720, end: 20080723
  16. VIVAGLOBIN [Suspect]
     Indication: IMMUNODEFICIENCY COMMON VARIABLE
     Dosage: 86 ML Q1W SC
     Route: 058
     Dates: start: 20080720, end: 20080723
  17. VIVAGLOBIN [Suspect]
     Indication: IMMUNODEFICIENCY COMMON VARIABLE
     Dosage: 86 ML Q1W SC
     Route: 058
     Dates: start: 20080731, end: 20080731
  18. VIVAGLOBIN [Suspect]
     Indication: IMMUNODEFICIENCY COMMON VARIABLE
     Dosage: 86 ML Q1W SC
     Route: 058
     Dates: start: 20080731, end: 20080731
  19. VIVAGLOBIN [Suspect]
     Indication: IMMUNODEFICIENCY COMMON VARIABLE
     Dosage: 86 ML Q1W SC
     Route: 058
     Dates: start: 20080324
  20. VIVAGLOBIN [Suspect]
  21. VIVAGLOBIN [Suspect]
  22. VIVAGLOBIN [Suspect]
  23. VIVAGLOBIN [Suspect]
  24. VIVAGLOBIN [Suspect]
  25. VIVAGLOBIN [Suspect]

REACTIONS (6)
  - BLOOD PRESSURE SYSTOLIC INCREASED [None]
  - HEART RATE INCREASED [None]
  - ILL-DEFINED DISORDER [None]
  - PSEUDOMONAS INFECTION [None]
  - SINUSITIS [None]
  - WHEEZING [None]
